FAERS Safety Report 9910261 (Version 2)
Quarter: 2014Q1

REPORT INFORMATION
  Report Type: Spontaneous
  Country: IT (occurrence: IT)
  Receive Date: 20140219
  Receipt Date: 20140225
  Transmission Date: 20141002
  Serious: Yes (Disabling)
  Sender: FDA-Public Use
  Company Number: IT-TEVA-462901ISR

PATIENT
  Age: 41 Year
  Sex: Female

DRUGS (2)
  1. CARBOPLATINO TEVA [Suspect]
     Indication: UTERINE CANCER
     Dosage: 500 MILLIGRAM DAILY;
     Route: 042
     Dates: start: 20140130, end: 20140130
  2. PACLITAXEL TEVA [Suspect]
     Indication: UTERINE CANCER
     Dosage: 300 MILLIGRAM DAILY;
     Route: 042
     Dates: start: 20140130, end: 20140130

REACTIONS (4)
  - Areflexia [Not Recovered/Not Resolved]
  - Hypoaesthesia [Not Recovered/Not Resolved]
  - Coordination abnormal [Not Recovered/Not Resolved]
  - Gait disturbance [Not Recovered/Not Resolved]
